FAERS Safety Report 10960885 (Version 5)
Quarter: 2015Q2

REPORT INFORMATION
  Report Type: Spontaneous
  Country: US (occurrence: US)
  Receive Date: 20150327
  Receipt Date: 20150629
  Transmission Date: 20150821
  Serious: Yes (Hospitalization, Other)
  Sender: FDA-Public Use
  Company Number: US-BAXTER-2015BAX016726

PATIENT
  Sex: Male
  Weight: 92.62 kg

DRUGS (1)
  1. DIANEAL LOW CALCIUM PERITONEAL DIALYSIS SOLUTION WITH DEXTROSE [Suspect]
     Active Substance: CALCIUM CHLORIDE\DEXTROSE\MAGNESIUM CHLORIDE\SODIUM CHLORIDE\SODIUM LACTATE
     Indication: PERITONEAL DIALYSIS
     Route: 033
     Dates: start: 20121226

REACTIONS (12)
  - Respiratory distress [Unknown]
  - Bile duct stone [Unknown]
  - Peritonitis [Recovering/Resolving]
  - Infection [Recovering/Resolving]
  - Cholelithiasis migration [Not Recovered/Not Resolved]
  - Myocardial infarction [Unknown]
  - Pericardial effusion [Recovering/Resolving]
  - Pain [Unknown]
  - Pleural effusion [Recovering/Resolving]
  - Coronary artery occlusion [Recovering/Resolving]
  - Cardiac failure congestive [Recovering/Resolving]
  - Dyspnoea [Unknown]

NARRATIVE: CASE EVENT DATE: 20150314
